FAERS Safety Report 6793154-3 (Version None)
Quarter: 2010Q2

REPORT INFORMATION
  Report Type: 
  Country: None (occurrence: None)
  Receive Date: 20100624
  Receipt Date: 20091005
  Transmission Date: 20101027
  Serious: Yes (Other)
  Sender: FDA-Public Use
  Company Number: US-MYLANLABS-2009S1010400

PATIENT
  Age: 47 Year
  Sex: Male
  Weight: 57.15 kg

DRUGS (11)
  1. CLOZAPINE [Suspect]
     Indication: PSYCHOTIC DISORDER
     Route: 048
     Dates: start: 20090701, end: 20090801
  2. CLOZAPINE [Suspect]
     Route: 048
     Dates: end: 20090701
  3. DEPAKOTE [Concomitant]
     Indication: CONVULSION
     Route: 048
  4. SENNA [Concomitant]
     Route: 048
  5. SYNTHROID [Concomitant]
     Indication: HYPOTHYROIDISM
     Route: 048
  6. TRILAFON /00023401/ [Concomitant]
     Indication: PSYCHOTIC DISORDER
     Route: 048
  7. ASPIRIN [Concomitant]
     Route: 048
  8. MULTI-VITAMIN [Concomitant]
     Route: 048
  9. CELEXA [Concomitant]
     Indication: DEPRESSION
     Route: 048
  10. TEGRETOL [Concomitant]
  11. DELSYM [Concomitant]

REACTIONS (2)
  - GRANULOCYTOPENIA [None]
  - LEUKOPENIA [None]
